FAERS Safety Report 6446491-6 (Version None)
Quarter: 2009Q4

REPORT INFORMATION
  Report Type: 
  Country: None (occurrence: None)
  Receive Date: 20091119
  Receipt Date: 20091109
  Transmission Date: 20100525
  Serious: No
  Sender: FDA-Public Use
  Company Number: US-B.I. PHARMACEUTICALS,INC./RIDGEFIELD-2009-BP-13106BP

PATIENT
  Sex: Male

DRUGS (27)
  1. COMBIVENT [Suspect]
     Indication: EMPHYSEMA
     Dosage: 3 PUF
     Route: 055
     Dates: start: 20070101
  2. ASPIRIN [Concomitant]
     Dosage: 81 MG
  3. ASMANEX TWISTHALER [Concomitant]
     Dates: start: 20091001
  4. DOCUSATE [Concomitant]
     Indication: FAECES HARD
     Dosage: 250 MG
  5. VITAMIN A [Concomitant]
  6. OMEPRAZOLE [Concomitant]
     Indication: GASTROOESOPHAGEAL REFLUX DISEASE
  7. MIRTAZAPINE [Concomitant]
     Indication: SLEEP DISORDER
     Dosage: 20 MG
  8. SIMVASTATIN [Concomitant]
     Indication: BLOOD CHOLESTEROL INCREASED
     Dosage: 20 MG
  9. SERTRALINE HCL [Concomitant]
     Indication: DEPRESSION
     Dosage: 50 MG
  10. CLONAZEPAM [Concomitant]
     Indication: BIPOLAR DISORDER
     Dosage: 30 MG
  11. CLONAZEPAM [Concomitant]
     Indication: AGORAPHOBIA
  12. VITAMIN E [Concomitant]
     Indication: VITAMIN SUPPLEMENTATION
     Dosage: 1000 U
  13. CALCIUM [Concomitant]
     Indication: MINERAL SUPPLEMENTATION
  14. LAMOTRIQUE [Concomitant]
     Indication: MOOD DISORDER DUE TO A GENERAL MEDICAL CONDITION
     Dosage: 100 MG
  15. CETIRIZINE [Concomitant]
     Indication: HYPERSENSITIVITY
     Dosage: 10 MG
  16. WELLBUTRIN [Concomitant]
     Dosage: 300 MG
  17. DICLOFENAC [Concomitant]
     Indication: ARTHRITIS
     Dosage: 100 MG
  18. OXYCODONE HCL [Concomitant]
     Indication: PAIN
  19. FISH OIL [Concomitant]
  20. VITAMIN D3 [Concomitant]
  21. VITAMIN D [Concomitant]
  22. COD LIVER OIL [Concomitant]
  23. FLAXSEED OIL [Concomitant]
     Dosage: 3000 MG
  24. CLEAR LUNGS XS [Concomitant]
  25. ARTICHOKE LEAVES [Concomitant]
  26. NASONEX [Concomitant]
  27. NACL NASAL SPRAY [Concomitant]

REACTIONS (2)
  - DRUG INEFFECTIVE [None]
  - UNDERDOSE [None]
